FAERS Safety Report 10239738 (Version 1)
Quarter: 2014Q2

REPORT INFORMATION
  Report Type: Spontaneous
  Country: US (occurrence: US)
  Receive Date: 20140616
  Receipt Date: 20140616
  Transmission Date: 20141212
  Serious: Yes (Death, Other)
  Sender: FDA-Public Use
  Company Number: US-GILEAD-2014-0105263

PATIENT
  Sex: Male

DRUGS (9)
  1. LETAIRIS [Suspect]
     Indication: PULMONARY ARTERIAL HYPERTENSION
     Dosage: 5 MG, QD
     Route: 065
     Dates: start: 20121025
  2. ADCIRCA [Concomitant]
  3. FUROSEMIDE [Concomitant]
  4. REMODULIN [Concomitant]
  5. WARFARIN [Concomitant]
  6. IPRATROPIUM [Concomitant]
  7. PAROXETINE [Concomitant]
  8. ASPIRIN [Concomitant]
  9. ATIVAN [Concomitant]

REACTIONS (1)
  - Death [Fatal]
